FAERS Safety Report 11636904 (Version 1)
Quarter: 2015Q4

REPORT INFORMATION
  Report Type: Spontaneous
  Country: US (occurrence: None)
  Receive Date: 20151015
  Receipt Date: 20151015
  Transmission Date: 20160304
  Serious: Yes (Disabling)
  Sender: FDA-Public Use
  Company Number: None

PATIENT
  Age: 65 Year
  Sex: Male
  Weight: 68.04 kg

DRUGS (21)
  1. NAMENDA [Concomitant]
     Active Substance: MEMANTINE HYDROCHLORIDE
  2. CLONAZEPAM. [Concomitant]
     Active Substance: CLONAZEPAM
  3. VESICARE [Concomitant]
     Active Substance: SOLIFENACIN SUCCINATE
  4. CARB/LEVODOPA ER [Concomitant]
  5. ESCITALOPRAM [Concomitant]
     Active Substance: ESCITALOPRAM OXALATE
  6. ONDANSETRON [Concomitant]
     Active Substance: ONDANSETRON
  7. CRESTOR [Concomitant]
     Active Substance: ROSUVASTATIN CALCIUM
  8. LISINOPRIL. [Concomitant]
     Active Substance: LISINOPRIL
  9. METHENAMINE [Concomitant]
     Active Substance: METHENAMINE
  10. OMEGA 3 [Concomitant]
     Active Substance: OMEGA-3 FATTY ACIDS
  11. PANTOPRAZOLE [Concomitant]
     Active Substance: PANTOPRAZOLE SODIUM
  12. BABY ASA [Concomitant]
     Active Substance: ASPIRIN
  13. MIRALAX [Concomitant]
     Active Substance: POLYETHYLENE GLYCOL 3350
  14. METAMUCIL [Concomitant]
     Active Substance: PLANTAGO SEED
  15. STALEVO [Concomitant]
     Active Substance: CARBIDOPA\ENTACAPONE\LEVODOPA
  16. COENZYME Q10 [Concomitant]
     Active Substance: UBIDECARENONE
  17. VITAMIN C [Concomitant]
     Active Substance: ASCORBIC ACID
  18. SINEMET [Concomitant]
     Active Substance: CARBIDOPA\LEVODOPA
  19. RYTARY [Suspect]
     Active Substance: CARBIDOPA\LEVODOPA
     Indication: PARKINSON^S DISEASE
     Dosage: 4-5 MONTHS; 3-4 CAPSULES;
     Route: 048
  20. CENTRUM FOR MEN [Concomitant]
  21. VITAMIN D3 [Concomitant]
     Active Substance: CHOLECALCIFEROL

REACTIONS (8)
  - Circadian rhythm sleep disorder [None]
  - Dysphagia [None]
  - Abnormal dreams [None]
  - Communication disorder [None]
  - Bladder disorder [None]
  - Musculoskeletal stiffness [None]
  - Functional gastrointestinal disorder [None]
  - Somnolence [None]

NARRATIVE: CASE EVENT DATE: 20150828
